FAERS Safety Report 11515583 (Version 2)
Quarter: 2016Q1

REPORT INFORMATION
  Report Type: Report from Study
  Country: BR (occurrence: BR)
  Receive Date: 20150916
  Receipt Date: 20160310
  Transmission Date: 20160525
  Serious: Yes (Other)
  Sender: FDA-Public Use
  Company Number: BR-ABBVIE-15K-020-1463132-00

PATIENT
  Age: 66 Year
  Sex: Female
  Weight: 67 kg

DRUGS (13)
  1. CODEX [Suspect]
     Active Substance: ACETAMINOPHEN\CODEINE PHOSPHATE
     Indication: PRODUCT USED FOR UNKNOWN INDICATION
     Route: 065
  2. SERTRALINE [Concomitant]
     Active Substance: SERTRALINE HYDROCHLORIDE
     Indication: DEPRESSION
     Route: 048
     Dates: start: 20131001
  3. METHOTREXATE [Suspect]
     Active Substance: METHOTREXATE
     Route: 048
  4. VITAMIN D [Concomitant]
     Active Substance: CHOLECALCIFEROL
     Indication: MINERAL SUPPLEMENTATION
     Route: 048
  5. HUMIRA [Suspect]
     Active Substance: ADALIMUMAB
     Indication: RHEUMATOID ARTHRITIS
     Route: 058
     Dates: start: 20121015
  6. CALCIUM [Concomitant]
     Active Substance: CALCIUM
     Indication: OSTEOPENIA
     Route: 048
     Dates: start: 20050101
  7. GLUCOSAMINE [Concomitant]
     Active Substance: GLUCOSAMINE
     Indication: SYNOVIAL DISORDER
  8. GLUCOSAMINE [Concomitant]
     Active Substance: GLUCOSAMINE
     Indication: CHONDROPATHY
     Route: 048
     Dates: start: 20150201
  9. UNDENATURED TYPE-II COLLAGEN [Concomitant]
     Indication: CHONDROPATHY
     Route: 048
     Dates: start: 20150201
  10. METHOTREXATE [Suspect]
     Active Substance: METHOTREXATE
     Indication: ARTHRITIS
     Route: 048
     Dates: start: 20121101
  11. HYDROXYZINE [Concomitant]
     Active Substance: HYDROXYZINE\HYDROXYZINE HYDROCHLORIDE
     Indication: ANTIALLERGIC THERAPY
     Route: 048
     Dates: start: 20120101
  12. UNDENATURED TYPE-II COLLAGEN [Concomitant]
     Indication: SYNOVIAL DISORDER
  13. CITALOPRAM [Concomitant]
     Active Substance: CITALOPRAM HYDROBROMIDE
     Indication: DEPRESSION
     Route: 048
     Dates: start: 201601

REACTIONS (12)
  - Inappropriate schedule of drug administration [Unknown]
  - Osteoarthritis [Recovering/Resolving]
  - Blood cholesterol increased [Not Recovered/Not Resolved]
  - Drug administration error [Recovered/Resolved]
  - Tendonitis [Recovering/Resolving]
  - Onychomadesis [Recovering/Resolving]
  - Onychoclasis [Recovering/Resolving]
  - Burning sensation [Not Recovered/Not Resolved]
  - Meniscus injury [Recovering/Resolving]
  - Cyst [Recovering/Resolving]
  - Pruritus [Recovering/Resolving]
  - Blood homocysteine abnormal [Not Recovered/Not Resolved]

NARRATIVE: CASE EVENT DATE: 20140901
